FAERS Safety Report 23247866 (Version 2)
Quarter: 2024Q1

REPORT INFORMATION
  Report Type: Spontaneous
  Country: JP (occurrence: JP)
  Receive Date: 20231130
  Receipt Date: 20240119
  Transmission Date: 20240410
  Serious: Yes (Other)
  Sender: FDA-Public Use
  Company Number: JP-NEUROCRINE BIOSCIENCES INC.-2023NBI10281

PATIENT
  Age: 60 Year
  Sex: Female

DRUGS (1)
  1. VALBENAZINE [Suspect]
     Active Substance: VALBENAZINE
     Indication: Product used for unknown indication
     Dosage: 40 MILLIGRAM, QD
     Route: 048

REACTIONS (1)
  - Spinal stenosis [Not Recovered/Not Resolved]
